FAERS Safety Report 12211318 (Version 1)
Quarter: 2016Q1

REPORT INFORMATION
  Report Type: Spontaneous
  Country: US (occurrence: None)
  Receive Date: 20160324
  Receipt Date: 20160324
  Transmission Date: 20160526
  Serious: No
  Sender: FDA-Public Use
  Company Number: None

PATIENT
  Age: 77 Year
  Sex: Male

DRUGS (15)
  1. TRIAMCINOLONE CREAM 0.1% [Concomitant]
     Active Substance: TRIAMCINOLONE
  2. BENAZEPRIL [Concomitant]
     Active Substance: BENAZEPRIL HYDROCHLORIDE
  3. CEPHALEXIN. [Concomitant]
     Active Substance: CEPHALEXIN
  4. GELNIQUE [Concomitant]
     Active Substance: OXYBUTYNIN CHLORIDE
  5. PROCTOZONE CREAM [Concomitant]
  6. LEVOFLOXACIN. [Concomitant]
     Active Substance: LEVOFLOXACIN
  7. VOLTAREN [Concomitant]
     Active Substance: DICLOFENAC SODIUM
  8. AMOXICILLIN/CLAVULANATE [Concomitant]
     Active Substance: AMOXICILLIN\CLAVULANATE POTASSIUM
  9. LUPRON [Suspect]
     Active Substance: LEUPROLIDE ACETATE
     Indication: PROSTATE CANCER
     Dosage: ONCE EVERY 3 MONTHS, INTRAMUSCULAR DEPOT INJECTION?ONGOING THERAPY
     Route: 030
     Dates: start: 20160125
  10. AZITHROMYCIN ANHYDROUS. [Concomitant]
     Active Substance: AZITHROMYCIN ANHYDROUS
  11. ATENOLOL. [Concomitant]
     Active Substance: ATENOLOL
  12. OMEPRAZOLE. [Concomitant]
     Active Substance: OMEPRAZOLE
  13. MYRBETRIQ [Concomitant]
     Active Substance: MIRABEGRON
  14. AMLODIPINE [Concomitant]
     Active Substance: AMLODIPINE BESYLATE
  15. IBUPROFEN. [Concomitant]
     Active Substance: IBUPROFEN

REACTIONS (1)
  - Feeling hot [None]

NARRATIVE: CASE EVENT DATE: 2016
